FAERS Safety Report 7733096-X (Version None)
Quarter: 2011Q3

REPORT INFORMATION
  Report Type: 
  Country: None (occurrence: None)
  Receive Date: 20110907
  Receipt Date: 20110902
  Transmission Date: 20111222
  Serious: Yes (Other)
  Sender: FDA-Public Use
  Company Number: US-MERCK-1109USA00302

PATIENT
  Sex: Female

DRUGS (2)
  1. FOSAMAX [Suspect]
     Route: 048
     Dates: start: 20060101, end: 20100301
  2. ALENDRONATE SODIUM [Suspect]
     Route: 048
     Dates: start: 20060101, end: 20100301

REACTIONS (2)
  - ADVERSE EVENT [None]
  - FEMUR FRACTURE [None]
